FAERS Safety Report 23228214 (Version 2)
Quarter: 2023Q4

REPORT INFORMATION
  Report Type: Spontaneous
  Country: US (occurrence: None)
  Receive Date: 20231125
  Receipt Date: 20231218
  Transmission Date: 20240109
  Serious: No
  Sender: FDA-Public Use
  Company Number: 2023A258291

PATIENT
  Sex: Female

DRUGS (1)
  1. SYMBICORT [Suspect]
     Active Substance: BUDESONIDE\FORMOTEROL FUMARATE DIHYDRATE
     Dosage: 80, UNKNOWN UNKNOWN
     Route: 055

REACTIONS (3)
  - Cardiac disorder [Unknown]
  - Incorrect dose administered by device [Unknown]
  - Device delivery system issue [Unknown]
